FAERS Safety Report 5759592-2 (Version None)
Quarter: 2008Q2

REPORT INFORMATION
  Report Type: 
  Country: None (occurrence: None)
  Receive Date: 20080605
  Receipt Date: 20080529
  Transmission Date: 20081010
  Serious: Yes (Hospitalization)
  Sender: FDA-Public Use
  Company Number: US-ASTRAZENECA-2008UW10852

PATIENT
  Age: 22429 Day
  Sex: Female
  Weight: 83.9 kg

DRUGS (14)
  1. SYMBICORT [Suspect]
     Indication: PLEURISY
     Dosage: 160/4.5 MCG
     Route: 055
     Dates: start: 20080522
  2. METHYLPRED [Concomitant]
  3. LOVAZA [Concomitant]
  4. RANITIDINE [Concomitant]
  5. LYRICA [Concomitant]
  6. NASONEX [Concomitant]
  7. ASTELIN [Concomitant]
  8. WELCHOL [Concomitant]
  9. LISINOPRIL [Concomitant]
  10. NIASPAN [Concomitant]
  11. PROVENTIL [Concomitant]
  12. SINGULAIR [Concomitant]
  13. ASPIRIN [Concomitant]
  14. ESTROGENIC SUBSTANCE [Concomitant]

REACTIONS (5)
  - DIZZINESS [None]
  - DYSPNOEA [None]
  - HEART RATE INCREASED [None]
  - HEART RATE IRREGULAR [None]
  - VENTRICULAR EXTRASYSTOLES [None]
